FAERS Safety Report 16400277 (Version 1)
Quarter: 2019Q2

REPORT INFORMATION
  Report Type: Spontaneous
  Country: US (occurrence: US)
  Receive Date: 20190606
  Receipt Date: 20190606
  Transmission Date: 20190711
  Serious: No
  Sender: FDA-Public Use
  Company Number: US-ALLERGAN-1838746US

PATIENT
  Age: 30 Year
  Sex: Male

DRUGS (1)
  1. KYBELLA [Suspect]
     Active Substance: DEOXYCHOLIC ACID
     Indication: FAT TISSUE INCREASED
     Dosage: UNK, SINGLE, 2 VIALS OVER 25 DOTS WERE INJECTED
     Route: 058
     Dates: start: 20180614, end: 20180614

REACTIONS (4)
  - Facial asymmetry [Not Recovered/Not Resolved]
  - Swelling [Recovered/Resolved]
  - Hypoaesthesia [Recovered/Resolved]
  - Drug ineffective [Unknown]

NARRATIVE: CASE EVENT DATE: 201806
